FAERS Safety Report 5389449-0 (Version None)
Quarter: 2007Q3

REPORT INFORMATION
  Report Type: 
  Country: None (occurrence: None)
  Receive Date: 20070717
  Receipt Date: 20070704
  Transmission Date: 20080115
  Serious: Yes (Hospitalization)
  Sender: FDA-Public Use
  Company Number: US-KINGPHARMUSA00001-K200700852

PATIENT

DRUGS (6)
  1. ALTACE [Suspect]
     Indication: ESSENTIAL HYPERTENSION
     Dosage: 20 MG, QD
     Route: 048
     Dates: end: 20070410
  2. COZAAR [Suspect]
     Indication: HYPERTENSION
     Dosage: 100 MG, QD
     Route: 048
     Dates: end: 20070410
  3. IODATE CONTRAST [Suspect]
     Route: 042
     Dates: start: 20070401, end: 20070401
  4. COROPRES [Concomitant]
     Dosage: 50 MG, UNK
     Route: 048
  5. TROMALYT [Concomitant]
     Dosage: 300 MG, UNK
     Route: 048
  6. PREVENCOR  /01326102/ [Concomitant]
     Dosage: 20 MG, UNK
     Route: 048

REACTIONS (3)
  - DRUG INTERACTION [None]
  - HYPERKALAEMIA [None]
  - RENAL FAILURE ACUTE [None]
